FAERS Safety Report 6409623-1 (Version None)
Quarter: 2009Q4

REPORT INFORMATION
  Report Type: 
  Country: None (occurrence: None)
  Receive Date: 20091022
  Receipt Date: 20091013
  Transmission Date: 20100525
  Serious: Yes (Other)
  Sender: FDA-Public Use
  Company Number: US-PFIZER INC-2006154791

PATIENT
  Sex: Female

DRUGS (6)
  1. DEPO-PROVERA [Suspect]
     Dosage: UNK
     Route: 030
     Dates: start: 20010201, end: 20050201
  2. ALLEGRA [Concomitant]
     Dosage: 180 MG, UNK
  3. SUDAFED 12 HOUR [Concomitant]
     Dosage: 30 MG, UNK
  4. IBUPROFEN [Concomitant]
  5. CELEBREX [Concomitant]
     Dosage: 200 MG, UNK
  6. FLEXERIL [Concomitant]

REACTIONS (3)
  - DRY EYE [None]
  - OSTEOPOROSIS [None]
  - VITAMIN B12 DEFICIENCY [None]
